FAERS Safety Report 18987467 (Version 1)
Quarter: 2021Q1

REPORT INFORMATION
  Report Type: Report from Study
  Country: DE (occurrence: CO)
  Receive Date: 20210309
  Receipt Date: 20210309
  Transmission Date: 20210420
  Serious: Yes (Other)
  Sender: FDA-Public Use
  Company Number: CO-ELI_LILLY_AND_COMPANY-CO202010005400

PATIENT
  Age: 42 Year
  Sex: Male

DRUGS (1)
  1. CETUXIMAB. [Suspect]
     Active Substance: CETUXIMAB
     Indication: COLORECTAL CANCER
     Dosage: 450 MG, WEEKLY (1/W)
     Route: 042
     Dates: start: 20191211

REACTIONS (2)
  - Surgery [Recovering/Resolving]
  - Weight decreased [Not Recovered/Not Resolved]

NARRATIVE: CASE EVENT DATE: 20201001
